FAERS Safety Report 9177774 (Version 1)
Quarter: 2013Q1

REPORT INFORMATION
  Report Type: Spontaneous
  Country: FR (occurrence: FR)
  Receive Date: 20130321
  Receipt Date: 20130321
  Transmission Date: 20140127
  Serious: Yes (Hospitalization, Disabling)
  Sender: FDA-Public Use
  Company Number: PHHY2013FR002150

PATIENT
  Age: 38 Year
  Sex: Female
  Weight: 64 kg

DRUGS (6)
  1. SIGNIFOR [Suspect]
     Indication: CUSHING^S SYNDROME
     Dosage: 600 UG, BID
     Dates: start: 201207
  2. LEVOTHYROX [Concomitant]
     Dosage: 25 UG, DAILY
  3. OXYNORM [Concomitant]
     Dosage: 5 MG, BID
  4. LOVENOX [Concomitant]
     Dosage: 0.4 ML, UNK
  5. MINIDRIL [Concomitant]
     Dosage: 1 DF, QD
     Route: 048
  6. CACIT D3 [Concomitant]
     Dosage: 1 DF, QD
     Route: 048

REACTIONS (1)
  - Osteonecrosis [Recovering/Resolving]
